FAERS Safety Report 5615771-6 (Version None)
Quarter: 2008Q1

REPORT INFORMATION
  Report Type: 
  Country: None (occurrence: None)
  Receive Date: 20080206
  Receipt Date: 20080128
  Transmission Date: 20080703
  Serious: Yes (Other)
  Sender: FDA-Public Use
  Company Number: MY-WYE-H02321108

PATIENT
  Age: 54 Year
  Sex: Female

DRUGS (1)
  1. TEMSIROLIMUS [Suspect]
     Indication: RENAL CELL CARCINOMA
     Route: 042
     Dates: start: 20071001

REACTIONS (1)
  - LUNG CONSOLIDATION [None]
